FAERS Safety Report 15074444 (Version 1)
Quarter: 2018Q2

REPORT INFORMATION
  Report Type: Spontaneous
  Country: BR (occurrence: BR)
  Receive Date: 20180627
  Receipt Date: 20180627
  Transmission Date: 20180711
  Serious: Yes (Death, Other)
  Sender: FDA-Public Use
  Company Number: BR-ROCHE-2145623

PATIENT
  Age: 53 Year
  Sex: Female

DRUGS (1)
  1. ACTILYSE [Suspect]
     Active Substance: ALTEPLASE
     Indication: INFARCTION
     Route: 065
     Dates: start: 20180622

REACTIONS (2)
  - Drug ineffective [Unknown]
  - Death [Fatal]
